FAERS Safety Report 9088032 (Version 1)
Quarter: 2013Q1

REPORT INFORMATION
  Report Type: Report from Study
  Country: US (occurrence: US)
  Receive Date: 20130130
  Receipt Date: 20130130
  Transmission Date: 20140127
  Serious: Yes (Hospitalization)
  Sender: FDA-Public Use
  Company Number: US-ABBOTT-12P-163-0969486-00

PATIENT
  Age: 36 Year
  Sex: Female

DRUGS (7)
  1. HUMIRA [Suspect]
     Dates: start: 20120626, end: 20120731
  2. HUMIRA [Suspect]
     Dates: start: 20120820
  3. CYMBALTA [Concomitant]
     Indication: DEPRESSION
  4. LAMICTAL [Concomitant]
     Indication: DEPRESSION
  5. LAMICTAL [Concomitant]
     Indication: ANXIETY
  6. LISINOPRIL [Concomitant]
     Indication: HYPERTENSION
     Dosage: 10MG DAILY
  7. ZYRTEC [Concomitant]
     Indication: HYPERSENSITIVITY

REACTIONS (1)
  - Mastoiditis [Recovered/Resolved]
